FAERS Safety Report 19027369 (Version 1)
Quarter: 2021Q1

REPORT INFORMATION
  Report Type: Spontaneous
  Country: CN (occurrence: CN)
  Receive Date: 20210318
  Receipt Date: 20210318
  Transmission Date: 20210420
  Serious: Yes (Other)
  Sender: FDA-Public Use
  Company Number: CN-PFIZER INC-2021276551

PATIENT
  Age: 25 Year
  Sex: Male
  Weight: 60 kg

DRUGS (3)
  1. LV KANG [Suspect]
     Active Substance: TANDOSPIRONE CITRATE
     Indication: ANXIETY
     Dosage: 20 MG, 3X/DAY
     Route: 048
     Dates: start: 20210208, end: 20210208
  2. WU LING [HERBALS] [Suspect]
     Active Substance: HERBALS
     Indication: ANXIETY
     Dosage: 3 DF, 3X/DAY
     Route: 048
     Dates: start: 20210208, end: 20210208
  3. ZOLOFT [Suspect]
     Active Substance: SERTRALINE HYDROCHLORIDE
     Indication: ANXIETY
     Dosage: 50 MG, 1X/DAY
     Route: 048
     Dates: start: 20210208, end: 20210208

REACTIONS (2)
  - Altered state of consciousness [Recovering/Resolving]
  - Physical disability [Recovering/Resolving]

NARRATIVE: CASE EVENT DATE: 20210208
